FAERS Safety Report 18095854 (Version 5)
Quarter: 2020Q3

REPORT INFORMATION
  Report Type: Spontaneous
  Country: DE (occurrence: DE)
  Receive Date: 20200730
  Receipt Date: 20200902
  Transmission Date: 20201103
  Serious: No
  Sender: FDA-Public Use
  Company Number: DE-ALLERGAN-2027022US

PATIENT
  Age: 78 Year
  Sex: Male

DRUGS (1)
  1. OZURDEX [Suspect]
     Active Substance: DEXAMETHASONE
     Indication: CYSTOID MACULAR OEDEMA
     Dosage: 0.7 MG, SINGLE
     Route: 031
     Dates: start: 20200316, end: 20200316

REACTIONS (3)
  - Complication of device insertion [Unknown]
  - Product administered at inappropriate site [Unknown]
  - Product quality issue [Unknown]

NARRATIVE: CASE EVENT DATE: 20200316
